FAERS Safety Report 13953954 (Version 1)
Quarter: 2017Q3

REPORT INFORMATION
  Report Type: Spontaneous
  Country: US (occurrence: US)
  Receive Date: 20170911
  Receipt Date: 20170911
  Transmission Date: 20171128
  Serious: No
  Sender: FDA-Public Use
  Company Number: US-TEVA-775270ACC

PATIENT
  Sex: Female
  Weight: 86.64 kg

DRUGS (11)
  1. CLONAZEPAM. [Concomitant]
     Active Substance: CLONAZEPAM
     Indication: PANIC ATTACK
  2. ALPRAZOLAM. [Concomitant]
     Active Substance: ALPRAZOLAM
     Indication: POST-TRAUMATIC STRESS DISORDER
     Dosage: 0.5MG EVERY 8HOURS
  3. MORPHINE SULFATE. [Concomitant]
     Active Substance: MORPHINE SULFATE
     Indication: BACK PAIN
     Dosage: TAKE 3 TABLETS BY MOUTH ONCE IN MORNING,ONCE BEFORE BED
  4. OXYCODONE [Concomitant]
     Active Substance: OXYCODONE
     Indication: BACK PAIN
     Dosage: 1 TABLET BY MOUTH EVERY 6HOURS AS NEEDED MAXIMUM OF 4 A DAY
  5. OXYCODONE [Concomitant]
     Active Substance: OXYCODONE
     Indication: SCIATICA
  6. TRAZODONE [Concomitant]
     Active Substance: TRAZODONE HYDROCHLORIDE
     Indication: SLEEP DISORDER
     Dosage: 2 TABLETS BY MOUTH AT BEDTIME, TAKING 13 YEARS OR SO
  7. GABAPENTIN. [Concomitant]
     Active Substance: GABAPENTIN
     Indication: HOT FLUSH
     Dosage: 300 MILLIGRAM DAILY; 2 CAPSULES BY MOUTH TAKING 5 YEARS
  8. VENLAFAXINE [Suspect]
     Active Substance: VENLAFAXINE HYDROCHLORIDE
     Indication: DEPRESSION
     Dosage: 37.5MG CAPSULES, 2CAPS BY MOUTH ONE TIME DAILY
     Dates: start: 201612
  9. CLONAZEPAM. [Concomitant]
     Active Substance: CLONAZEPAM
     Indication: ANXIETY
     Dosage: 4 MILLIGRAM DAILY; 1 TABLET MY MOUTH 4TIMES DAILY, TAKING FOR 11-12YEARS
  10. RANITIDINE. [Concomitant]
     Active Substance: RANITIDINE
     Indication: GASTROOESOPHAGEAL REFLUX DISEASE
     Dosage: 300MG 1 TABLET BY MOUTH A DAY, TAKING 8YEARS
  11. SUMATRIPTAN SUCCINATE. [Concomitant]
     Active Substance: SUMATRIPTAN SUCCINATE
     Indication: MIGRAINE
     Dosage: AS NEEDED BY MOUTH, TAKING FOR 2YEARS

REACTIONS (1)
  - Urine amphetamine [Unknown]
